FAERS Safety Report 18208483 (Version 1)
Quarter: 2020Q3

REPORT INFORMATION
  Report Type: Spontaneous
  Country: FR (occurrence: FR)
  Receive Date: 20200828
  Receipt Date: 20200828
  Transmission Date: 20201103
  Serious: Yes (Hospitalization)
  Sender: FDA-Public Use
  Company Number: FR-MYLANLABS-2020M1073617

PATIENT
  Age: 93 Year
  Sex: Female

DRUGS (9)
  1. BISOPROLOL [Concomitant]
     Active Substance: BISOPROLOL
     Route: 048
  2. DISCOTRINE [Concomitant]
     Active Substance: NITROGLYCERIN
     Route: 062
  3. PANTOPRAZOLE [Concomitant]
     Active Substance: PANTOPRAZOLE
     Route: 048
  4. DUPHALAC [Concomitant]
     Active Substance: LACTULOSE
     Route: 048
  5. FUROSEMIDE. [Concomitant]
     Active Substance: FUROSEMIDE
     Route: 048
  6. RAMIPRIL. [Suspect]
     Active Substance: RAMIPRIL
     Indication: CARDIAC FAILURE
     Dosage: 1.25 MILLIGRAM, QD
     Route: 048
     Dates: start: 20200415, end: 20200425
  7. TARDYFERON [Concomitant]
     Active Substance: FERROUS SULFATE
     Route: 048
  8. AMLOR [Concomitant]
     Active Substance: AMLODIPINE BESYLATE
     Route: 048
  9. PRAMIPEXOLE. [Suspect]
     Active Substance: PRAMIPEXOLE
     Indication: RESTLESS LEGS SYNDROME
     Dosage: UNK
     Route: 048
     Dates: start: 20200422, end: 20200425

REACTIONS (1)
  - Pancreatitis acute [Recovered/Resolved]

NARRATIVE: CASE EVENT DATE: 20200424
